FAERS Safety Report 8134395-2 (Version None)
Quarter: 2012Q1

REPORT INFORMATION
  Report Type: 
  Country: None (occurrence: None)
  Receive Date: 20120209
  Receipt Date: 20120130
  Transmission Date: 20120608
  Serious: Yes (Other)
  Sender: FDA-Public Use
  Company Number: 1184901

PATIENT
  Age: 79 Year
  Sex: Female

DRUGS (3)
  1. GENTAMICIN SULFATE [Suspect]
     Indication: LUNG INFECTION
     Dosage: 160 MG MILLIGRAM(S), UNKNOWN, INTRAVENOUS (NOT OTHERWISE SPECIFIED)
     Route: 042
     Dates: start: 20120124, end: 20120127
  2. MERREM [Concomitant]
  3. VANCOMYCIN [Concomitant]

REACTIONS (2)
  - PRURITUS GENERALISED [None]
  - ERYTHEMA [None]
